FAERS Safety Report 21236868 (Version 1)
Quarter: 2022Q3

REPORT INFORMATION
  Report Type: Spontaneous
  Country: US (occurrence: US)
  Receive Date: 20220822
  Receipt Date: 20220822
  Transmission Date: 20221026
  Serious: Yes (Other)
  Sender: FDA-Public Use
  Company Number: US-CIPLA LTD.-2022US05043

PATIENT

DRUGS (11)
  1. ATORVASTATIN [Interacting]
     Active Substance: ATORVASTATIN
     Indication: Product used for unknown indication
     Dosage: UNK
     Route: 065
  2. APIXABAN [Interacting]
     Active Substance: APIXABAN
     Indication: Product used for unknown indication
     Dosage: UNK
     Route: 065
  3. RIFABUTIN [Interacting]
     Active Substance: RIFABUTIN
     Indication: Device related infection
     Dosage: 4 WEEKS, FOLLOWED BY 3 MONTHS
     Route: 065
  4. RIFABUTIN [Interacting]
     Active Substance: RIFABUTIN
     Indication: Staphylococcal infection
  5. OXYCODONE [Interacting]
     Active Substance: OXYCODONE
     Indication: Product used for unknown indication
     Dosage: UNK
     Route: 065
  6. CEFAZOLIN [Concomitant]
     Active Substance: CEFAZOLIN
     Indication: Device related infection
     Dosage: UNK (8 WEEKS)
     Route: 042
  7. CEFAZOLIN [Concomitant]
     Active Substance: CEFAZOLIN
     Indication: Staphylococcal infection
  8. DAPTOMYCIN [Concomitant]
     Active Substance: DAPTOMYCIN
     Indication: Staphylococcal infection
     Dosage: UNK (8 WEEKS)
     Route: 042
  9. DAPTOMYCIN [Concomitant]
     Active Substance: DAPTOMYCIN
     Indication: Device related infection
  10. DOXYCYCLINE [Concomitant]
     Active Substance: DOXYCYCLINE
     Indication: Staphylococcal infection
     Dosage: UNK (12 MONTHS)
     Route: 048
  11. DOXYCYCLINE [Concomitant]
     Active Substance: DOXYCYCLINE
     Indication: Device related infection

REACTIONS (3)
  - Drug interaction [Unknown]
  - Leukopenia [Unknown]
  - Blood creatinine increased [Unknown]
